FAERS Safety Report 25685906 (Version 1)
Quarter: 2025Q3

REPORT INFORMATION
  Report Type: Spontaneous
  Country: US (occurrence: US)
  Receive Date: 20250815
  Receipt Date: 20250815
  Transmission Date: 20251021
  Serious: Yes (Hospitalization, Other)
  Sender: NOVO NORDISK
  Company Number: US-NOVOPROD-1496301

PATIENT
  Sex: Female

DRUGS (4)
  1. NOVOLIN 70/30 [Suspect]
     Active Substance: INSULIN HUMAN
     Indication: Type 2 diabetes mellitus
     Route: 058
     Dates: start: 2017
  2. KEYTRUDA [Suspect]
     Active Substance: PEMBROLIZUMAB
     Indication: Neoplasm recurrence
     Dates: start: 2021
  3. KRAZATI [Concomitant]
     Active Substance: ADAGRASIB
     Indication: Neoplasm recurrence
     Dates: start: 2021
  4. LUMAKRAS [Concomitant]
     Active Substance: SOTORASIB
     Indication: Neoplasm recurrence
     Dates: start: 2021, end: 2023

REACTIONS (1)
  - Pneumonitis [Unknown]
